FAERS Safety Report 22847016 (Version 2)
Quarter: 2023Q4

REPORT INFORMATION
  Report Type: Report from Study
  Country: US (occurrence: US)
  Receive Date: 20230822
  Receipt Date: 20231122
  Transmission Date: 20240110
  Serious: Yes (Death)
  Sender: FDA-Public Use
  Company Number: US-JNJFOC-20230843008

PATIENT
  Age: 63 Year
  Sex: Male

DRUGS (1)
  1. CILTACABTAGENE AUTOLEUCEL [Suspect]
     Active Substance: CILTACABTAGENE AUTOLEUCEL
     Indication: Plasma cell myeloma
     Dosage: TOTAL NUMBER OF CELLS ADMINISTERED:0.6, TOTAL CELLS EXPONENT VALUE:6 (0.6X 10^6 )
     Route: 042
     Dates: start: 2023, end: 2023

REACTIONS (1)
  - Immune effector cell-associated neurotoxicity syndrome [Fatal]
